FAERS Safety Report 15669583 (Version 1)
Quarter: 2018Q4

REPORT INFORMATION
  Report Type: Spontaneous
  Country: US (occurrence: US)
  Receive Date: 20181129
  Receipt Date: 20181129
  Transmission Date: 20190205
  Serious: No
  Sender: FDA-Public Use
  Company Number: US-ASTRAZENECA-2008BM02778

PATIENT
  Age: 65 Year
  Sex: Female

DRUGS (8)
  1. BYETTA [Suspect]
     Active Substance: EXENATIDE
     Indication: INSULIN-REQUIRING TYPE 2 DIABETES MELLITUS
     Route: 058
     Dates: start: 20080219
  2. NOVOLOG [Concomitant]
     Active Substance: INSULIN ASPART
     Dosage: THREE TIMES A DAY
  3. LANTUS [Concomitant]
     Active Substance: INSULIN GLARGINE
     Dates: start: 2001, end: 20080219
  4. LANTUS [Concomitant]
     Active Substance: INSULIN GLARGINE
     Dates: start: 20080220
  5. NOVOLOG [Concomitant]
     Active Substance: INSULIN ASPART
     Dosage: 30.0IU UNKNOWN
     Dates: start: 20080219, end: 20080219
  6. BYETTA [Suspect]
     Active Substance: EXENATIDE
     Indication: INSULIN-REQUIRING TYPE 2 DIABETES MELLITUS
     Route: 058
  7. BRILINTA [Suspect]
     Active Substance: TICAGRELOR
     Dosage: DAILY
     Route: 048
  8. BRILINTA [Suspect]
     Active Substance: TICAGRELOR
     Dosage: TWO TIMES A DAY
     Route: 048

REACTIONS (5)
  - Product prescribing error [Recovered/Resolved]
  - Blood glucose increased [Not Recovered/Not Resolved]
  - Underdose [Unknown]
  - Tremor [Unknown]
  - Blood glucose decreased [Unknown]

NARRATIVE: CASE EVENT DATE: 20080219
